FAERS Safety Report 12333582 (Version 2)
Quarter: 2016Q2

REPORT INFORMATION
  Report Type: Spontaneous
  Country: DE (occurrence: DE)
  Receive Date: 20160504
  Receipt Date: 20160613
  Transmission Date: 20160815
  Serious: Yes (Death, Hospitalization)
  Sender: FDA-Public Use
  Company Number: DE-ACTELION-A-CH2016-135189

PATIENT
  Age: 19 Year
  Sex: Female
  Weight: 75 kg

DRUGS (4)
  1. URBASON [Suspect]
     Active Substance: METHYLPREDNISOLONE
     Indication: SARCOIDOSIS
     Dosage: 8 MG, OD
     Route: 048
     Dates: start: 201511, end: 20160401
  2. CERTOPARIN SODIUM [Suspect]
     Active Substance: CERTOPARIN SODIUM
     Indication: HAEMATOCRIT INCREASED
     Dosage: 1X1 OD
     Route: 048
     Dates: start: 201510, end: 20160401
  3. OPSUMIT [Suspect]
     Active Substance: MACITENTAN
     Indication: PULMONARY ARTERIAL HYPERTENSION
     Dosage: 10 MG, OD
     Route: 048
     Dates: start: 201510, end: 20160401
  4. SILDENAFIL. [Suspect]
     Active Substance: SILDENAFIL
     Indication: PULMONARY ARTERIAL HYPERTENSION
     Dosage: 20 MG, TID
     Route: 048
     Dates: start: 201510, end: 20160401

REACTIONS (7)
  - General physical health deterioration [Fatal]
  - Circulatory collapse [Fatal]
  - Multiple organ dysfunction syndrome [Fatal]
  - Dyspnoea [Fatal]
  - Tachycardia [Fatal]
  - Cardiac failure [Fatal]
  - Vomiting [Fatal]

NARRATIVE: CASE EVENT DATE: 20160328
